FAERS Safety Report 16635435 (Version 1)
Quarter: 2019Q3

REPORT INFORMATION
  Report Type: Spontaneous
  Country: NL (occurrence: NL)
  Receive Date: 20190726
  Receipt Date: 20190726
  Transmission Date: 20191004
  Serious: Yes (Hospitalization)
  Sender: FDA-Public Use
  Company Number: NL-AUROBINDO-AUR-APL-2019-043494

PATIENT

DRUGS (1)
  1. AMOXICILLIN POWDER FOR SOLUTION FOR INJECTION OR INFUSION [Suspect]
     Active Substance: AMOXICILLIN
     Indication: PNEUMONIA
     Dosage: UNK
     Route: 042

REACTIONS (2)
  - Lung infiltration [Recovered/Resolved]
  - Pyrexia [Recovered/Resolved]
